FAERS Safety Report 8329761-6 (Version None)
Quarter: 2012Q2

REPORT INFORMATION
  Report Type: 
  Country: None (occurrence: None)
  Receive Date: 20120502
  Receipt Date: 20120427
  Transmission Date: 20120825
  Serious: Yes (Other)
  Sender: FDA-Public Use
  Company Number: US-PFIZER INC-2012105363

PATIENT
  Sex: Female
  Weight: 56.689 kg

DRUGS (4)
  1. LYRICA [Suspect]
     Indication: PERINEURIAL CYST
     Dosage: 75 MG, 3X/DAY
     Route: 048
     Dates: start: 20060601
  2. ALPRAZOLAM [Concomitant]
     Indication: ANXIETY
     Dosage: UNK
     Dates: start: 19970101
  3. ATENOLOL [Concomitant]
     Indication: HYPERTENSION
     Dosage: 25 MG, DAILY
  4. LISINOPRIL AND HYDROCHLOROTHIAZIDE [Concomitant]
     Indication: HYPERTENSION
     Dosage: 10/12.5 MG, DAILY

REACTIONS (2)
  - DENTAL CARIES [None]
  - TOOTH DISORDER [None]
